FAERS Safety Report 20641431 (Version 1)
Quarter: 2022Q1

REPORT INFORMATION
  Report Type: Other
  Country: US (occurrence: None)
  Receive Date: 20220328
  Receipt Date: 20220328
  Transmission Date: 20220424
  Serious: No
  Sender: FDA-Public Use
  Company Number: US-ROCHE-3052092

PATIENT
  Sex: Female
  Weight: 86.260 kg

DRUGS (9)
  1. OCREVUS [Suspect]
     Active Substance: OCRELIZUMAB
     Indication: Relapsing multiple sclerosis
     Dosage: ONGOING: NO
     Route: 042
     Dates: start: 2019
  2. OCREVUS [Suspect]
     Active Substance: OCRELIZUMAB
     Dosage: ONGOING: UNKNOWN
     Route: 042
  3. OCREVUS [Suspect]
     Active Substance: OCRELIZUMAB
     Route: 042
  4. CLONAZEPAM [Suspect]
     Active Substance: CLONAZEPAM
     Indication: Multiple sclerosis
     Dosage: ONGOING: NO  FORMULATION: PILL
     Route: 048
     Dates: start: 2000
  5. CLONAZEPAM [Suspect]
     Active Substance: CLONAZEPAM
     Dosage: ONGOING: YES FORMULATION: PILL
     Route: 048
  6. LEVOTHYROXINE [Concomitant]
     Active Substance: LEVOTHYROXINE
     Dosage: ONGOING YES (PILL)
     Route: 048
  7. PANTOPRAZOLE [Concomitant]
     Active Substance: PANTOPRAZOLE
     Dosage: ONGOING YES
     Route: 048
  8. VITAMIN D3 [Concomitant]
     Active Substance: CHOLECALCIFEROL
     Dosage: ONGOING YES (PILL)
     Route: 048
  9. ZINC [Concomitant]
     Active Substance: ZINC
     Dosage: ONGOING YES
     Route: 048

REACTIONS (9)
  - Bronchitis [Recovered/Resolved]
  - Anaemia [Recovered/Resolved]
  - Abscess [Recovered/Resolved]
  - Dental caries [Recovered/Resolved]
  - Tooth infection [Recovered/Resolved]
  - JC polyomavirus test positive [Unknown]
  - Alopecia [Recovered/Resolved]
  - Depression [Unknown]
  - Off label use [Unknown]

NARRATIVE: CASE EVENT DATE: 20210101
